FAERS Safety Report 8295464-X (Version None)
Quarter: 2012Q2

REPORT INFORMATION
  Report Type: 
  Country: None (occurrence: None)
  Receive Date: 20120418
  Receipt Date: 20120416
  Transmission Date: 20120825
  Serious: Yes (Hospitalization, Other)
  Sender: FDA-Public Use
  Company Number: CA-TEVA-333648USA

PATIENT
  Sex: Female

DRUGS (1)
  1. ATENOLOL [Suspect]
     Route: 048

REACTIONS (1)
  - ANAPHYLACTIC REACTION [None]
